FAERS Safety Report 16744712 (Version 1)
Quarter: 2019Q3

REPORT INFORMATION
  Report Type: Spontaneous
  Country: NO (occurrence: NO)
  Receive Date: 20190827
  Receipt Date: 20190827
  Transmission Date: 20191005
  Serious: Yes (Hospitalization)
  Sender: FDA-Public Use
  Company Number: NO-FERRINGPH-2019FE05386

PATIENT
  Age: 46 Year
  Sex: Male

DRUGS (4)
  1. FIRMAGON [Suspect]
     Active Substance: DEGARELIX ACETATE
     Dosage: 240 MG, ONCE/SINGLE
     Route: 058
     Dates: start: 2017, end: 2017
  2. TOSTRAN [Suspect]
     Active Substance: TESTOSTERONE
     Indication: BLOOD TESTOSTERONE DECREASED
     Dosage: USED FOR ABOUT 2 1/2 YEARS.
     Route: 003
     Dates: start: 2017, end: 201906
  3. MAVENCLAD [Suspect]
     Active Substance: CLADRIBINE
     Indication: MULTIPLE SCLEROSIS
     Dosage: RECOMMENDED DOSE IS 3.5MG/KG DURING 2 YEARS
     Route: 048
  4. FIRMAGON [Suspect]
     Active Substance: DEGARELIX ACETATE
     Indication: MULTIPLE SCLEROSIS
     Dosage: 80 MG, MONTHLY
     Route: 058
     Dates: start: 2017, end: 2018

REACTIONS (3)
  - Product use in unapproved indication [Unknown]
  - Bladder cancer [Recovered/Resolved with Sequelae]
  - Off label use [Unknown]

NARRATIVE: CASE EVENT DATE: 2017
